FAERS Safety Report 21198904 (Version 1)
Quarter: 2022Q3

REPORT INFORMATION
  Report Type: Report from Study
  Country: GB (occurrence: GB)
  Receive Date: 20220811
  Receipt Date: 20220811
  Transmission Date: 20221026
  Serious: Yes (Other)
  Sender: FDA-Public Use
  Company Number: GB-CELGENE-GBR-20220106689

PATIENT
  Age: 78 Year
  Sex: Female

DRUGS (10)
  1. DEXAMETHASONE [Suspect]
     Active Substance: DEXAMETHASONE
     Indication: Plasma cell myeloma
     Dosage: FREQUENCY TEXT: NOT PROVIDED, 10MG, THERAPY END DATE NASK
     Route: 048
     Dates: start: 20211007
  2. DEXAMETHASONE [Suspect]
     Active Substance: DEXAMETHASONE
     Dosage: FREQUENCY TEXT: NOT PROVIDED,THERAPY END DATE NASK, 20MG
     Route: 048
     Dates: start: 20190117
  3. DEXAMETHASONE [Suspect]
     Active Substance: DEXAMETHASONE
     Dosage: FREQUENCY TEXT: NOT PROVIDED, 10MG, THERAPY END DATE NASK
     Route: 048
     Dates: start: 20210923
  4. DEXAMETHASONE [Suspect]
     Active Substance: DEXAMETHASONE
     Dosage: FREQUENCY TEXT: NOT PROVIDED, 20MG, THERAPY END DATE NASK
     Route: 048
     Dates: start: 20190131
  5. DEXAMETHASONE [Suspect]
     Active Substance: DEXAMETHASONE
     Dosage: FREQUENCY TEXT: NOT PROVIDED, 10MG, THERAPY END DATE NASK
     Route: 048
     Dates: start: 20210916
  6. DEXAMETHASONE [Suspect]
     Active Substance: DEXAMETHASONE
     Dosage: FREQUENCY TEXT: NOT PROVIDED, 20MG, THERAPY END DATE NASK
     Route: 048
     Dates: start: 20190110
  7. DEXAMETHASONE [Suspect]
     Active Substance: DEXAMETHASONE
     Dosage: FREQUENCY TEXT: NOT PROVIDED, 20MG, THERAPY END DATE NASK
     Route: 048
     Dates: start: 20190124
  8. DEXAMETHASONE [Suspect]
     Active Substance: DEXAMETHASONE
     Dosage: FREQUENCY TEXT: NOT PROVIDED, 10MG, THERAPY END DATE NASK
     Route: 048
     Dates: start: 20210930
  9. POMALIDOMIDE [Suspect]
     Active Substance: POMALIDOMIDE
     Indication: Plasma cell myeloma
     Dosage: FREQUENCY TEXT: NOT PROVIDED, 2MG, DURATION 20DAYS
     Route: 048
     Dates: start: 20210916, end: 20211006
  10. POMALIDOMIDE [Suspect]
     Active Substance: POMALIDOMIDE
     Dosage: FREQUENCY TEXT: NOT PROVIDED, 4MG, DURATION 21DAYS
     Route: 048
     Dates: start: 20190110, end: 20190131

REACTIONS (1)
  - Neutropenia [Recovered/Resolved]

NARRATIVE: CASE EVENT DATE: 20211004
